FAERS Safety Report 9040220 (Version 1)
Quarter: 2013Q1

REPORT INFORMATION
  Report Type: Report from Study
  Country: PR (occurrence: PR)
  Receive Date: 20130129
  Receipt Date: 20130129
  Transmission Date: 20140127
  Serious: No
  Sender: FDA-Public Use
  Company Number: PR-ABBOTT-11P-131-0887118-00

PATIENT
  Age: 52 Year
  Sex: Female

DRUGS (6)
  1. HUMIRA 40 MG/0.8 ML PEN [Suspect]
     Indication: RHEUMATOID ARTHRITIS
     Route: 058
     Dates: start: 20111221
  2. CLONAZEPAM [Concomitant]
     Indication: CARDIAC DISORDER
     Route: 048
  3. RISPERIDONE [Concomitant]
     Indication: DEPRESSION
     Route: 048
  4. TRAMADOL [Concomitant]
     Indication: PAIN
     Route: 048
  5. FLEXERIL [Concomitant]
     Indication: PAIN
     Route: 048
  6. RELAFEN [Concomitant]
     Indication: PAIN
     Route: 048

REACTIONS (16)
  - Back pain [Unknown]
  - Headache [Unknown]
  - Local swelling [Unknown]
  - Local swelling [Unknown]
  - Abdominal distension [Unknown]
  - Throat irritation [Unknown]
  - Generalised oedema [Not Recovered/Not Resolved]
  - Dyspnoea [Not Recovered/Not Resolved]
  - Blood glucose abnormal [Not Recovered/Not Resolved]
  - Dizziness [Not Recovered/Not Resolved]
  - Breast inflammation [Not Recovered/Not Resolved]
  - Vulvovaginal pruritus [Not Recovered/Not Resolved]
  - Hypotension [Not Recovered/Not Resolved]
  - Weight increased [Not Recovered/Not Resolved]
  - Syncope [Recovered/Resolved]
  - Syncope [Recovered/Resolved]
